FAERS Safety Report 9893578 (Version 1)
Quarter: 2014Q1

REPORT INFORMATION
  Report Type: Report from Study
  Country: US (occurrence: US)
  Receive Date: 20140213
  Receipt Date: 20140213
  Transmission Date: 20141002
  Serious: Yes (Death)
  Sender: FDA-Public Use
  Company Number: US-ASTRAZENECA-2014SE09634

PATIENT
  Age: 27425 Day
  Sex: Female

DRUGS (1)
  1. PULMICORT RESPULES [Suspect]
     Dosage: 0.5MG/2ML TWICE A DAY
     Route: 055

REACTIONS (2)
  - Death [Fatal]
  - Off label use [Unknown]
